FAERS Safety Report 25540509 (Version 1)
Quarter: 2025Q3

REPORT INFORMATION
  Report Type: Spontaneous
  Country: US (occurrence: None)
  Receive Date: 20250709
  Receipt Date: 20250709
  Transmission Date: 20251021
  Serious: No
  Sender: FDA-CTU
  Company Number: None

PATIENT
  Age: 55 Year
  Sex: Male

DRUGS (1)
  1. SCEMBLIX [Suspect]
     Active Substance: ASCIMINIB HYDROCHLORIDE
     Indication: Chronic myeloid leukaemia
     Dosage: FREQUENCY : DAILY;?
     Route: 048
     Dates: start: 20241231

REACTIONS (9)
  - Euphoric mood [None]
  - Urinary tract infection [None]
  - Nausea [None]
  - Dizziness [None]
  - Dehydration [None]
  - Blindness [None]
  - Immobile [None]
  - Therapy interrupted [None]
  - Bone marrow transplant [None]

NARRATIVE: CASE EVENT DATE: 20250709
